FAERS Safety Report 20062702 (Version 1)
Quarter: 2021Q4

REPORT INFORMATION
  Report Type: Spontaneous
  Country: US (occurrence: US)
  Receive Date: 20211112
  Receipt Date: 20211112
  Transmission Date: 20220303
  Serious: No
  Sender: FDA-Public Use
  Company Number: US-PFIZER INC-2021424455

PATIENT
  Age: 74 Year
  Sex: Female

DRUGS (1)
  1. VENLAFAXINE HCL [Suspect]
     Active Substance: VENLAFAXINE HYDROCHLORIDE
     Dosage: UNK

REACTIONS (6)
  - Drug hypersensitivity [Unknown]
  - Burning sensation [Unknown]
  - Erythema [Unknown]
  - Tremor [Unknown]
  - Anxiety [Unknown]
  - Panic attack [Unknown]
